FAERS Safety Report 9324780 (Version 1)
Quarter: 2013Q2

REPORT INFORMATION
  Report Type: Spontaneous
  Country: US (occurrence: US)
  Receive Date: 20130603
  Receipt Date: 20130603
  Transmission Date: 20140414
  Serious: No
  Sender: FDA-Public Use
  Company Number: US-TEVA-408335USA

PATIENT
  Age: 33 Year
  Sex: Female

DRUGS (2)
  1. PLAN B ONE-STEP [Suspect]
     Indication: CONTRACEPTION
  2. NEXT CHOICE [Suspect]

REACTIONS (2)
  - Menstruation irregular [Unknown]
  - Weight decreased [Unknown]
